FAERS Safety Report 10247451 (Version 4)
Quarter: 2014Q4

REPORT INFORMATION
  Report Type: Report from Study
  Country: DE (occurrence: DE)
  Receive Date: 20140619
  Receipt Date: 20141001
  Transmission Date: 20150528
  Serious: Yes (Hospitalization)
  Sender: FDA-Public Use
  Company Number: DE-BRISTOL-MYERS SQUIBB COMPANY-21059647

PATIENT
  Age: 70 Year
  Sex: Male
  Weight: 83 kg

DRUGS (13)
  1. XARELTO [Concomitant]
     Active Substance: RIVAROXABAN
     Indication: PULMONARY EMBOLISM
  2. CISPLATIN. [Suspect]
     Active Substance: CISPLATIN
     Route: 042
     Dates: start: 20140120, end: 20140404
  3. MANNITOL. [Concomitant]
     Active Substance: MANNITOL
     Route: 042
  4. EMEND [Concomitant]
     Active Substance: APREPITANT
     Route: 048
  5. ERBITUX [Suspect]
     Active Substance: CETUXIMAB
     Indication: SQUAMOUS CELL CARCINOMA OF HEAD AND NECK
     Dosage: 400MG/M2:20JAN-20JAN14?250MG/M2:UNK-03MAR14?250MG/M2:04APR14-
     Route: 042
     Dates: start: 20140120, end: 20140310
  6. CARBOPLATIN. [Suspect]
     Active Substance: CARBOPLATIN
     Dosage: INT: 11-MAR-2014 TO 04-APR-2014
     Route: 042
     Dates: start: 20140120
  7. CISPLATIN. [Concomitant]
     Active Substance: CISPLATIN
  8. 5-FLUOROURACIL [Suspect]
     Active Substance: FLUOROURACIL
     Indication: SQUAMOUS CELL CARCINOMA OF HEAD AND NECK
     Dosage: 4000MG/M2:TO MAR2014?2000MG/M2:04APR2014-
     Route: 042
     Dates: start: 20140120
  9. DEXAMETHASONE. [Concomitant]
     Active Substance: DEXAMETHASONE
     Indication: PREMEDICATION
     Route: 042
  10. SODIUM CHLORIDE. [Concomitant]
     Active Substance: SODIUM CHLORIDE
  11. TAVEGIL [Concomitant]
     Active Substance: CLEMASTINE FUMARATE
     Route: 042
  12. ONDANSETRON [Concomitant]
     Active Substance: ONDANSETRON
     Indication: PREMEDICATION
     Route: 042
  13. CARBOPLATIN. [Concomitant]
     Active Substance: CARBOPLATIN

REACTIONS (8)
  - Asthenia [Recovered/Resolved]
  - Dehydration [Recovered/Resolved]
  - Hypophagia [Recovered/Resolved]
  - General physical health deterioration [Recovered/Resolved]
  - Dysphagia [Recovered/Resolved]
  - Chronic kidney disease [Unknown]
  - Circulatory collapse [Recovered/Resolved]
  - Mucosal inflammation [Not Recovered/Not Resolved]

NARRATIVE: CASE EVENT DATE: 20140307
